FAERS Safety Report 4736118-3 (Version None)
Quarter: 2005Q3

REPORT INFORMATION
  Report Type: 
  Country: None (occurrence: None)
  Receive Date: 20050729
  Receipt Date: 20050627
  Transmission Date: 20060218
  Serious: No
  Sender: FDA-Public Use
  Company Number: CLOF-10033

PATIENT
  Age: 9 Year
  Weight: 27.4 kg

DRUGS (1)
  1. CLOFARABINE [Suspect]
     Indication: ACUTE LYMPHOCYTIC LEUKAEMIA
     Dates: start: 20050101

REACTIONS (1)
  - PIGMENTATION DISORDER [None]
